FAERS Safety Report 4880491-2 (Version None)
Quarter: 2006Q1

REPORT INFORMATION
  Report Type: 
  Country: None (occurrence: None)
  Receive Date: 20060113
  Receipt Date: 20041201
  Transmission Date: 20060701
  Serious: Yes (Life-Threatening, Hospitalization, Disabling, Other)
  Sender: FDA-Public Use
  Company Number: US-MERCK-0412USA00219

PATIENT
  Age: 43 Year
  Sex: Male
  Weight: 151 kg

DRUGS (7)
  1. VIOXX [Suspect]
     Indication: ARTHRALGIA
     Route: 048
     Dates: start: 19990101, end: 20030827
  2. VIOXX [Suspect]
     Indication: BACK PAIN
     Route: 048
     Dates: start: 19990101, end: 20030827
  3. NOVOLIN R [Concomitant]
     Route: 065
  4. KADIAN [Concomitant]
     Indication: BACK PAIN
     Route: 048
     Dates: start: 19980101
  5. XANAX [Concomitant]
     Indication: PANIC ATTACK
     Route: 048
     Dates: start: 19860101, end: 20050801
  6. NEXIUM [Concomitant]
     Route: 065
  7. LIPITOR [Concomitant]
     Indication: BLOOD CHOLESTEROL INCREASED
     Route: 048
     Dates: start: 19990101

REACTIONS (23)
  - ANXIETY [None]
  - ARTERIOSCLEROSIS CORONARY ARTERY [None]
  - ARTHRITIS [None]
  - BACK DISORDER [None]
  - CARDIOMEGALY [None]
  - CHEST PAIN [None]
  - CORONARY ARTERY DISEASE [None]
  - DIABETES MELLITUS NON-INSULIN-DEPENDENT [None]
  - DISTURBANCE IN ATTENTION [None]
  - DRUG DEPENDENCE [None]
  - ELECTROCARDIOGRAM Q WAVE ABNORMAL [None]
  - ERECTILE DYSFUNCTION [None]
  - GASTROOESOPHAGEAL REFLUX DISEASE [None]
  - HYPOAESTHESIA [None]
  - MYOCARDIAL INFARCTION [None]
  - PAIN IN EXTREMITY [None]
  - PAIN IN JAW [None]
  - PRESCRIBED OVERDOSE [None]
  - PULMONARY HYPERTENSION [None]
  - ROTATOR CUFF SYNDROME [None]
  - SINUS TACHYCARDIA [None]
  - SLEEP APNOEA SYNDROME [None]
  - VISUAL DISTURBANCE [None]
